FAERS Safety Report 4326543-7 (Version None)
Quarter: 2004Q1

REPORT INFORMATION
  Report Type: 
  Country: None (occurrence: None)
  Receive Date: 20040326
  Receipt Date: 20040326
  Transmission Date: 20041129
  Serious: Yes (Other)
  Sender: FDA-Public Use
  Company Number: None

PATIENT
  Age: 70 Year
  Sex: Female

DRUGS (4)
  1. SEROQUEL [Suspect]
     Indication: SCHIZOPHRENIA
     Dosage: 100 MG QAM/ 200 MG QPM (AT TIME OF HOME CONSULT)
     Dates: start: 20031222, end: 20040120
  2. COGENTIN [Concomitant]
  3. ARICEPT [Concomitant]
  4. NIZORAL CREAM [Concomitant]

REACTIONS (3)
  - AGGRESSION [None]
  - AGITATION [None]
  - WHITE BLOOD CELL COUNT DECREASED [None]
